FAERS Safety Report 5819558-0 (Version None)
Quarter: 2008Q3

REPORT INFORMATION
  Report Type: 
  Country: None (occurrence: None)
  Receive Date: 20080723
  Receipt Date: 20080716
  Transmission Date: 20090109
  Serious: Yes (Hospitalization)
  Sender: FDA-Public Use
  Company Number: FR-ELI_LILLY_AND_COMPANY-FR200804004436

PATIENT
  Age: 74 Year
  Sex: Female

DRUGS (7)
  1. FORTEO [Suspect]
     Indication: OSTEOPOROSIS
     Dosage: 20 UG, DAILY (1/D)
     Route: 058
     Dates: start: 20080115, end: 20080321
  2. TRIATEC /FRA/ [Concomitant]
     Indication: CARDIAC DISORDER
     Dosage: UNK, UNKNOWN
     Route: 065
  3. LASIX [Concomitant]
     Indication: CARDIAC DISORDER
     Dosage: 20 MG, QOD
     Route: 065
  4. METHOTREXATE SODIUM [Concomitant]
     Indication: RHEUMATOID ARTHRITIS
     Dosage: UNK, UNKNOWN
     Route: 065
  5. FOLIC ACID [Concomitant]
     Indication: RHEUMATOID ARTHRITIS
     Dosage: UNK, UNKNOWN
     Route: 065
  6. TOPALGIC /FRA/ [Concomitant]
     Indication: PAIN
     Dosage: 150 MG, DAILY (1/D)
     Route: 048
  7. DOLIPRANE [Concomitant]
     Indication: PAIN
     Dosage: 2 G, DAILY (1/D)
     Route: 065

REACTIONS (5)
  - BLOOD BILIRUBIN INCREASED [None]
  - BLOOD BILIRUBIN UNCONJUGATED INCREASED [None]
  - HEPATIC CIRRHOSIS [None]
  - JAUNDICE [None]
  - SERUM FERRITIN INCREASED [None]
